FAERS Safety Report 9015565 (Version 1)
Quarter: 2013Q1

REPORT INFORMATION
  Report Type: Spontaneous
  Country: US (occurrence: None)
  Receive Date: 20130102
  Receipt Date: 20130102
  Transmission Date: 20140127
  Serious: Yes (Death)
  Sender: FDA-Public Use
  Company Number: DSA_61581_2012

PATIENT
  Sex: Male

DRUGS (6)
  1. XENAZINE 25 MG (NOT SPECIFIED) [Suspect]
     Indication: PRODUCT USED FOR UNKNOWN INDICATION
     Route: 048
  2. AMBIEN [Concomitant]
  3. COUMADIN [Concomitant]
  4. BENADRYL [Concomitant]
  5. MOBIC [Concomitant]
  6. LORTAB [Concomitant]

REACTIONS (1)
  - Death [None]
